FAERS Safety Report 20988637 (Version 2)
Quarter: 2022Q3

REPORT INFORMATION
  Report Type: Report from Study
  Country: US (occurrence: US)
  Receive Date: 20220621
  Receipt Date: 20220718
  Transmission Date: 20221026
  Serious: Yes (Death, Other)
  Sender: FDA-Public Use
  Company Number: US-KYOWAKIRIN-2022BKK009355

PATIENT

DRUGS (3)
  1. NOURIANZ [Suspect]
     Active Substance: ISTRADEFYLLINE
     Indication: Parkinson^s disease
     Dosage: 20 MG, QD
     Route: 048
     Dates: start: 20220131
  2. NOURIANZ [Suspect]
     Active Substance: ISTRADEFYLLINE
     Indication: Psychotic disorder
     Dosage: 20 MG, QD
     Route: 048
     Dates: start: 20220214
  3. NOURIANZ [Suspect]
     Active Substance: ISTRADEFYLLINE
     Indication: Hallucination

REACTIONS (2)
  - Death [Fatal]
  - Emergency care [Unknown]
